FAERS Safety Report 5345418-8 (Version None)
Quarter: 2007Q2

REPORT INFORMATION
  Report Type: 
  Country: None (occurrence: None)
  Receive Date: 20070430
  Receipt Date: 20070131
  Transmission Date: 20071010
  Serious: Yes (Other)
  Sender: FDA-Public Use
  Company Number: HQWYE640205FEB07

PATIENT
  Age: 49 Year
  Sex: Female
  Weight: 65.38 kg

DRUGS (2)
  1. ADVIL ALLERGY SINUS [Suspect]
     Indication: NASAL CONGESTION
     Dosage: 1 TABLET EVERY 4 TO 6 HOURS, NOT TO EXCEED LABEL, ORAL
     Route: 048
     Dates: start: 20061101, end: 20061101
  2. ADVIL ALLERGY SINUS [Suspect]
     Indication: SINUS HEADACHE
     Dosage: 1 TABLET EVERY 4 TO 6 HOURS, NOT TO EXCEED LABEL, ORAL
     Route: 048
     Dates: start: 20061101, end: 20061101

REACTIONS (2)
  - NIGHTMARE [None]
  - RESTLESSNESS [None]
